FAERS Safety Report 9612101 (Version 2)
Quarter: 2014Q1

REPORT INFORMATION
  Report Type: Spontaneous
  Country: US (occurrence: US)
  Receive Date: 20131010
  Receipt Date: 20140113
  Transmission Date: 20141002
  Serious: No
  Sender: FDA-Public Use
  Company Number: US-ASTELLAS-2013US009558

PATIENT
  Sex: Male
  Weight: 100 kg

DRUGS (11)
  1. MYRBETRIQ [Suspect]
     Indication: HYPERTONIC BLADDER
     Dosage: 50 MG, UID/QD
     Route: 048
     Dates: start: 201304, end: 201306
  2. MYRBETRIQ [Suspect]
     Dosage: 50 MG, BID
     Route: 048
     Dates: start: 201307
  3. GABAPENTIN [Concomitant]
     Indication: PAIN
     Dosage: 600 MG, TID
     Route: 048
  4. COLACE [Concomitant]
     Indication: FAECES HARD
     Dosage: 100 MG, BID
     Route: 048
  5. PRILOSEC                           /00661201/ [Concomitant]
     Indication: DYSPEPSIA
     Dosage: 20 MG, BID
     Route: 048
  6. SOMA [Concomitant]
     Indication: ARTHRITIS
     Dosage: 350 MG, BID
     Route: 048
  7. LIBRAX                             /00033301/ [Concomitant]
     Indication: GASTRIC DISORDER
     Dosage: UNK
     Route: 048
  8. REGLAN                             /00041901/ [Concomitant]
     Indication: GASTRIC DISORDER
     Dosage: 10 MG, TID
     Route: 048
  9. ZYRTEC [Concomitant]
     Indication: HYPERSENSITIVITY
     Dosage: 10 MG, UID/QD
     Route: 048
  10. ULTRACET [Concomitant]
     Indication: PAIN
     Dosage: 3.75-325  MG, BID
     Route: 048
  11. TYLENOL PM [Concomitant]
     Indication: SLEEP DISORDER
     Dosage: 150 MG, UID/QD
     Route: 048

REACTIONS (3)
  - Drug ineffective [Unknown]
  - Prescribed overdose [Unknown]
  - Intentional drug misuse [Unknown]
